FAERS Safety Report 24132072 (Version 1)
Quarter: 2024Q3

REPORT INFORMATION
  Report Type: Spontaneous
  Country: US (occurrence: US)
  Receive Date: 20240724
  Receipt Date: 20240724
  Transmission Date: 20241017
  Serious: No
  Sender: CSL Plasma
  Company Number: US-CSLP-62713452685-V002WKW8-111

PATIENT
  Age: 57 Year
  Sex: Female

DRUGS (3)
  1. ANTICOAGULANT SODIUM CITRATE [Suspect]
     Active Substance: SODIUM CITRATE
     Indication: Anticoagulant therapy
     Route: 050
     Dates: start: 20240628, end: 20240628
  2. CYMBALTA [Concomitant]
     Active Substance: DULOXETINE HYDROCHLORIDE
     Indication: Antidepressant therapy
  3. Multiple Vitamin with Iron and Vit c [Concomitant]
     Indication: Product used for unknown indication

REACTIONS (3)
  - Restlessness [Recovered/Resolved]
  - Muscle spasms [Recovered/Resolved]
  - Tetany [Recovered/Resolved]

NARRATIVE: CASE EVENT DATE: 20240628
